FAERS Safety Report 7705456-4 (Version None)
Quarter: 2011Q3

REPORT INFORMATION
  Report Type: 
  Country: None (occurrence: None)
  Receive Date: 20110818
  Receipt Date: 20110808
  Transmission Date: 20111222
  Serious: Yes (Death)
  Sender: FDA-Public Use
  Company Number: 2011SP002766

PATIENT

DRUGS (4)
  1. LATUDA [Suspect]
     Indication: SCHIZOAFFECTIVE DISORDER
     Dosage: 40 MG;QD;ORAL ; 80 MG;QD;ORAL
     Route: 048
     Dates: start: 20110601
  2. LATUDA [Suspect]
     Indication: SCHIZOAFFECTIVE DISORDER
     Dosage: 40 MG;QD;ORAL ; 80 MG;QD;ORAL
     Route: 048
     Dates: start: 20110601, end: 20110601
  3. PROZAC [Concomitant]
  4. RISPERDAL [Concomitant]

REACTIONS (1)
  - DEATH [None]
